FAERS Safety Report 5514463-1 (Version None)
Quarter: 2007Q4

REPORT INFORMATION
  Report Type: 
  Country: None (occurrence: None)
  Receive Date: 20071113
  Receipt Date: 20070530
  Transmission Date: 20080405
  Serious: No
  Sender: FDA-Public Use
  Company Number: A0653740A

PATIENT
  Age: 83 Year
  Sex: Male

DRUGS (14)
  1. COREG [Suspect]
     Indication: LEFT VENTRICULAR DYSFUNCTION
     Dosage: 6.25MG TWICE PER DAY
     Route: 048
     Dates: start: 20070101, end: 20070524
  2. COREG CR [Suspect]
     Indication: LEFT VENTRICULAR DYSFUNCTION
     Dosage: 20MG PER DAY
     Route: 048
     Dates: start: 20070525
  3. VITAMIN K [Concomitant]
  4. SIMVASTATIN [Concomitant]
  5. VITAMIN D [Concomitant]
  6. PLAVIX [Concomitant]
  7. FUROSEMIDE [Concomitant]
  8. RANITIDINE HCL [Concomitant]
  9. LUPRON [Concomitant]
  10. FISH OIL [Concomitant]
  11. ATACAND [Concomitant]
  12. FER-IN-SOL [Concomitant]
  13. PRANDIN [Concomitant]
  14. SPIRONOLACTONE [Concomitant]

REACTIONS (2)
  - DYSPNOEA [None]
  - HEADACHE [None]
